FAERS Safety Report 5587569-9 (Version None)
Quarter: 2008Q1

REPORT INFORMATION
  Report Type: 
  Country: None (occurrence: None)
  Receive Date: 20080108
  Receipt Date: 20080103
  Transmission Date: 20080703
  Serious: Yes (Other)
  Sender: FDA-Public Use
  Company Number: CHPA2008US00442

PATIENT
  Age: 70 Year
  Sex: Female

DRUGS (1)
  1. GAS-X EXTRA STRENGTH SOFTGELS (NCH)(SIMETHICONE) SOFT GELATIN CAPSULES [Suspect]
     Indication: FLATULENCE
     Dosage: 125 MG, ONCE/SINGLE, ORAL
     Route: 048
     Dates: start: 20071228, end: 20071228

REACTIONS (1)
  - BLOOD PRESSURE INCREASED [None]
